FAERS Safety Report 5695942-3 (Version None)
Quarter: 2008Q2

REPORT INFORMATION
  Report Type: 
  Country: None (occurrence: None)
  Receive Date: 20080407
  Receipt Date: 20080222
  Transmission Date: 20081010
  Serious: No
  Sender: FDA-Public Use
  Company Number: US-BAYER-200810602GPV

PATIENT
  Age: 56 Year
  Sex: Male

DRUGS (3)
  1. SULAR [Suspect]
     Indication: HYPERTENSION
     Route: 048
     Dates: start: 20071211
  2. HYOSCYAMINE 0.125 [Suspect]
     Indication: DIARRHOEA
     Route: 065
  3. POTASSIUM CHLORIDE [Concomitant]
     Indication: DRUG USE FOR UNKNOWN INDICATION
     Route: 065

REACTIONS (6)
  - CONFUSIONAL STATE [None]
  - DIZZINESS [None]
  - FEELING DRUNK [None]
  - FEELING OF RELAXATION [None]
  - HEADACHE [None]
  - SOMNOLENCE [None]
